FAERS Safety Report 20349819 (Version 1)
Quarter: 2022Q1

REPORT INFORMATION
  Report Type: Spontaneous
  Country: FR (occurrence: FR)
  Receive Date: 20220119
  Receipt Date: 20220119
  Transmission Date: 20220423
  Serious: Yes (Hospitalization, Other)
  Sender: FDA-Public Use
  Company Number: FR-EMA-DD-20211223-singh_p11-112137

PATIENT
  Age: 13 Year
  Sex: Female

DRUGS (5)
  1. RISPERIDONE [Suspect]
     Active Substance: RISPERIDONE
     Indication: Delusional disorder, unspecified type
     Dosage: UNK
     Route: 065
  2. QUETIAPINE [Suspect]
     Active Substance: QUETIAPINE
     Indication: Delusional disorder, unspecified type
     Dosage: UNK
     Route: 065
  3. LOXAPINE [Suspect]
     Active Substance: LOXAPINE
     Indication: Delusional disorder, unspecified type
     Dosage: UNK
     Route: 065
  4. CLOZAPINE [Suspect]
     Active Substance: CLOZAPINE
     Indication: Schizophrenia
     Dosage: 400 MILLIGRAM, DAILY
     Route: 065
  5. ARIPIPRAZOLE [Suspect]
     Active Substance: ARIPIPRAZOLE
     Indication: Delusional disorder, unspecified type
     Dosage: UNK
     Route: 065

REACTIONS (10)
  - Galactorrhoea [Unknown]
  - Drug ineffective [Unknown]
  - Amenorrhoea [Unknown]
  - Extrapyramidal disorder [Unknown]
  - Dystonia [Unknown]
  - Hyperphagia [Unknown]
  - Weight increased [Unknown]
  - Overdose [Unknown]
  - Hypotension [Unknown]
  - Constipation [Unknown]
